FAERS Safety Report 21299026 (Version 1)
Quarter: 2022Q3

REPORT INFORMATION
  Report Type: Spontaneous
  Country: US (occurrence: None)
  Receive Date: 20220905
  Receipt Date: 20220905
  Transmission Date: 20221027
  Serious: Yes (Other)
  Sender: FDA-Public Use
  Company Number: None

PATIENT
  Age: 54 Year
  Sex: Male
  Weight: 92.25 kg

DRUGS (1)
  1. SERTRALINE [Suspect]
     Active Substance: SERTRALINE HYDROCHLORIDE
     Indication: Depression
     Dosage: OTHER QUANTITY : 90 TABLET(S);?FREQUENCY : DAILY;?
     Route: 048
     Dates: start: 20220819

REACTIONS (12)
  - Product substitution issue [None]
  - Therapeutic response changed [None]
  - Serotonin syndrome [None]
  - Agitation [None]
  - Myalgia [None]
  - Arthralgia [None]
  - Pain in extremity [None]
  - Arthralgia [None]
  - Dizziness [None]
  - Functional gastrointestinal disorder [None]
  - Diarrhoea [None]
  - Abnormal faeces [None]

NARRATIVE: CASE EVENT DATE: 20220829
